FAERS Safety Report 20831801 (Version 2)
Quarter: 2022Q2

REPORT INFORMATION
  Report Type: Spontaneous
  Country: US (occurrence: US)
  Receive Date: 20220516
  Receipt Date: 20220525
  Transmission Date: 20220721
  Serious: No
  Sender: FDA-Public Use
  Company Number: US-ORGANON-O2205USA000748

PATIENT
  Age: 17 Year
  Sex: Female
  Weight: 79.365 kg

DRUGS (1)
  1. NEXPLANON [Suspect]
     Active Substance: ETONOGESTREL
     Indication: Contraception
     Dosage: 1 IMPLANT 68 MILLIGRAM IN LEFT ARM
     Route: 059
     Dates: start: 202108, end: 20220504

REACTIONS (4)
  - Weight increased [Recovering/Resolving]
  - Mood swings [Recovering/Resolving]
  - Device breakage [Recovered/Resolved]
  - Device kink [Recovered/Resolved]

NARRATIVE: CASE EVENT DATE: 20210801
